FAERS Safety Report 5015370-3 (Version None)
Quarter: 2006Q2

REPORT INFORMATION
  Report Type: 
  Country: None (occurrence: None)
  Receive Date: 20060601
  Receipt Date: 20060512
  Transmission Date: 20061013
  Serious: Yes (Death)
  Sender: FDA-Public Use
  Company Number: IN-BRACCO-BRO-010141

PATIENT
  Age: 56 Year
  Sex: Male

DRUGS (1)
  1. MULTIHANCE [Suspect]
     Dosage: ADMINISTERED AT 2 ML/SEC
     Route: 042
     Dates: start: 20060508, end: 20060508

REACTIONS (2)
  - ANAPHYLACTIC REACTION [None]
  - CARDIAC ARREST [None]
